FAERS Safety Report 8691492 (Version 5)
Quarter: 2012Q4

REPORT INFORMATION
  Report Type: 
  Country: US (occurrence: US)
  Receive Date: 20120730
  Receipt Date: 20121024
  Transmission Date: 20130627
  Serious: No
  Sender: FDA-Public Use
  Company Number: US-PFIZER INC-2012180081

PATIENT
  Age: 71 Year
  Sex: Male
  Weight: 92.1 kg

DRUGS (12)
  1. SUTENT [Suspect]
     Indication: RENAL CANCER METASTATIC
     Dosage: 50 mg, 42-day cycle
     Dates: start: 20120720
  2. SUTENT [Suspect]
     Dosage: 50 mg, 42-day cycle (2nd cycle)
     Dates: start: 20120901
  3. SUTENT [Suspect]
     Dosage: 50 mg, 42-day cycle (2nd cycle)
     Dates: start: 20121013
  4. HYDROCODONE [Concomitant]
     Indication: PAIN
     Dosage: 10 mg, as needed
  5. TIZANIDINE [Concomitant]
     Indication: MUSCLE SPASMS
     Dosage: 2 mg, at bed time
  6. TYLENOL [Concomitant]
     Indication: PAIN
     Dosage: 325 mg, as needed
  7. AMLODIPINE [Concomitant]
     Dosage: UNK
  8. SERTRALINE [Concomitant]
     Dosage: UNK
  9. INDAPAMIDE [Concomitant]
     Dosage: UNK
  10. JANUVIA [Concomitant]
     Dosage: UNK
  11. ASPIRIN [Concomitant]
     Dosage: 81 mg, daily
  12. NORCO [Concomitant]

REACTIONS (18)
  - Abdominal discomfort [Unknown]
  - Disease progression [Unknown]
  - Renal cancer metastatic [Unknown]
  - Nausea [Recovered/Resolved]
  - Weight decreased [Unknown]
  - Dysgeusia [Not Recovered/Not Resolved]
  - Fatigue [Unknown]
  - Dehydration [Unknown]
  - Stomatitis [Recovering/Resolving]
  - Gout [Unknown]
  - Gastrooesophageal reflux disease [Unknown]
  - Hiccups [Unknown]
  - Lip dry [Unknown]
  - Chapped lips [Unknown]
  - Decreased appetite [Unknown]
  - Dysphagia [Unknown]
  - Blood potassium abnormal [Unknown]
  - Blood glucose increased [Unknown]
